FAERS Safety Report 21670849 (Version 1)
Quarter: 2022Q4

REPORT INFORMATION
  Report Type: Spontaneous
  Country: IN (occurrence: IN)
  Receive Date: 20221202
  Receipt Date: 20221202
  Transmission Date: 20230113
  Serious: Yes (Hospitalization, Other)
  Sender: FDA-Public Use
  Company Number: IN-BAXTER-2022BAX025535

PATIENT
  Age: 10 Day
  Sex: Male

DRUGS (2)
  1. MIDAZOLAM [Suspect]
     Active Substance: MIDAZOLAM
     Indication: Neonatal seizure
     Dosage: 0.1MG/KG IN 1 ML OF 5% GLUCOSE SOLUTION, SLOWLY OVER 3 MINUTES
     Route: 042
  2. DEXTROSE [Suspect]
     Active Substance: DEXTROSE
     Indication: Medication dilution
     Dosage: 1 ML OF 5%, SLOWLY OVER 3 TIMES
     Route: 042

REACTIONS (2)
  - Dyskinesia [Recovered/Resolved]
  - Partial seizures [Recovered/Resolved]
